FAERS Safety Report 21873636 (Version 1)
Quarter: 2023Q1

REPORT INFORMATION
  Report Type: Spontaneous
  Country: US (occurrence: None)
  Receive Date: 20230116
  Receipt Date: 20230116
  Transmission Date: 20230417
  Serious: Yes (Death)
  Sender: FDA-Public Use
  Company Number: None

PATIENT
  Age: 74 Year
  Sex: Male
  Weight: 122.5 kg

DRUGS (1)
  1. KEYTRUDA [Suspect]
     Active Substance: PEMBROLIZUMAB

REACTIONS (9)
  - Myasthenia gravis [None]
  - General physical health deterioration [None]
  - Asthenia [None]
  - Orthopnoea [None]
  - Dyspnoea [None]
  - Head discomfort [None]
  - Oxygen saturation decreased [None]
  - Constipation [None]
  - Gait disturbance [None]

NARRATIVE: CASE EVENT DATE: 20221206
